FAERS Safety Report 11255532 (Version 14)
Quarter: 2016Q2

REPORT INFORMATION
  Report Type: Report from Study
  Country: BE (occurrence: BE)
  Receive Date: 20150709
  Receipt Date: 20160617
  Transmission Date: 20160815
  Serious: Yes (Hospitalization, Other)
  Sender: FDA-Public Use
  Company Number: BE-ABBVIE-15P-013-1403687-00

PATIENT
  Age: 74 Year
  Sex: Female

DRUGS (11)
  1. DUODOPA [Suspect]
     Active Substance: CARBIDOPA\LEVODOPA
     Dosage: UNKNOWN
     Route: 050
     Dates: end: 20150916
  2. DUODOPA [Suspect]
     Active Substance: CARBIDOPA\LEVODOPA
     Dosage: UNKNOWN
     Route: 050
     Dates: end: 20160314
  3. PROLOPA HBS [Concomitant]
     Active Substance: BENSERAZIDE\LEVODOPA
     Indication: PARKINSON^S DISEASE
     Dosage: FORM STRENGTH: 100MG/25MG
  4. DUODOPA [Suspect]
     Active Substance: CARBIDOPA\LEVODOPA
     Dosage: DOSE CONTINUOUSLY MONITORED AND ADAPTED
     Route: 050
     Dates: start: 20111007, end: 20150526
  5. DUODOPA [Suspect]
     Active Substance: CARBIDOPA\LEVODOPA
     Dosage: AM=5.5ML; CD=2.7ML/H FOR 16HRS; ED=1.2ML
     Route: 050
     Dates: start: 20160314
  6. DUODOPA [Suspect]
     Active Substance: CARBIDOPA\LEVODOPA
     Dosage: AM=4ML; CD=3.2ML/H (AM), 2.5ML/H (PM) FOR 16HRS; ED=1.2ML
     Route: 050
     Dates: start: 20151201, end: 20160114
  7. DUODOPA [Suspect]
     Active Substance: CARBIDOPA\LEVODOPA
     Indication: PARKINSON^S DISEASE
     Dosage: AM = 4 ML, CD = 1.9 ML/H, 16H ED=1 ML
     Route: 050
     Dates: start: 20111003, end: 20111007
  8. DUODOPA [Suspect]
     Active Substance: CARBIDOPA\LEVODOPA
     Dosage: AM = 5 ML, CD=3.8 ML/H, 16H, ED=1.5 ML
     Route: 050
     Dates: start: 20150526, end: 20150624
  9. DUODOPA [Suspect]
     Active Substance: CARBIDOPA\LEVODOPA
     Dosage: UNKNOWN
     Route: 050
     Dates: start: 20150624
  10. DUODOPA [Suspect]
     Active Substance: CARBIDOPA\LEVODOPA
     Dosage: AM=4ML;CD=3.2ML/HR DURING 16HRS;ED=1.2ML
     Route: 050
     Dates: start: 20150916, end: 20151201
  11. DUODOPA [Suspect]
     Active Substance: CARBIDOPA\LEVODOPA
     Dosage: AM=5.5ML; CD=2.8ML/HR DURING 16HRS; ED=1.2ML
     Route: 050
     Dates: start: 20160114

REACTIONS (21)
  - Pyrexia [Recovered/Resolved]
  - Device occlusion [Recovered/Resolved]
  - Influenza [Unknown]
  - Freezing phenomenon [Not Recovered/Not Resolved]
  - On and off phenomenon [Unknown]
  - General physical health deterioration [Recovering/Resolving]
  - Asthenia [Unknown]
  - Restlessness [Recovering/Resolving]
  - Hypokinesia [Recovering/Resolving]
  - Drug effect incomplete [Unknown]
  - Confusional state [Recovering/Resolving]
  - Incorrect route of drug administration [Recovered/Resolved]
  - Wheelchair user [Not Recovered/Not Resolved]
  - Device alarm issue [Recovered/Resolved]
  - Mobility decreased [Unknown]
  - Device occlusion [Unknown]
  - Device dislocation [Unknown]
  - Weight decreased [Recovering/Resolving]
  - Dyskinesia [Recovered/Resolved]
  - Dyskinesia [Unknown]
  - Excessive granulation tissue [Recovering/Resolving]

NARRATIVE: CASE EVENT DATE: 20150528
